FAERS Safety Report 16493716 (Version 1)
Quarter: 2019Q2

REPORT INFORMATION
  Report Type: Report from Study
  Country: None (occurrence: FR)
  Receive Date: 20190628
  Receipt Date: 20190628
  Transmission Date: 20190711
  Serious: Yes (Hospitalization)
  Sender: FDA-Public Use
  Company Number: FR-ABBVIE-19K-056-2833030-00

PATIENT
  Age: 61 Year
  Sex: Male
  Weight: 94 kg

DRUGS (9)
  1. MORPHINE SULFATE. [Concomitant]
     Active Substance: MORPHINE SULFATE
     Indication: INTERTRIGO
     Dosage: EVERY 4H (IF NEEDED BE)
     Route: 048
     Dates: start: 20190425
  2. AQUACEL MECHE [Concomitant]
     Dosage: INCREASED DOSE
  3. CYTELIUM SPRAY [Concomitant]
     Indication: INTERTRIGO
     Dates: start: 20190425
  4. COLD CREAM [Concomitant]
     Indication: PRODUCT USED FOR UNKNOWN INDICATION
  5. AQUACEL MECHE [Concomitant]
     Indication: INTERTRIGO
     Dates: start: 20190425, end: 20190621
  6. DOLIPRANE [Concomitant]
     Active Substance: ACETAMINOPHEN
     Indication: INTERTRIGO
     Route: 048
     Dates: start: 20190425
  7. LOCOID CREAM [Concomitant]
     Indication: PSORIASIS
     Route: 061
     Dates: start: 20190425, end: 20190509
  8. AUGMENTIN [Concomitant]
     Active Substance: AMOXICILLIN\CLAVULANATE POTASSIUM
     Indication: PRODUCT USED FOR UNKNOWN INDICATION
     Route: 048
     Dates: start: 20190616, end: 20190621
  9. HUMIRA [Suspect]
     Active Substance: ADALIMUMAB
     Indication: PRODUCT USED FOR UNKNOWN INDICATION
     Route: 058
     Dates: start: 201904

REACTIONS (3)
  - Intertrigo [Recovering/Resolving]
  - Psoriasis [Recovering/Resolving]
  - Stress [Unknown]

NARRATIVE: CASE EVENT DATE: 2019
